FAERS Safety Report 6843858-9 (Version None)
Quarter: 2010Q3

REPORT INFORMATION
  Report Type: 
  Country: None (occurrence: None)
  Receive Date: 20100715
  Receipt Date: 20100705
  Transmission Date: 20110219
  Serious: Yes (Hospitalization)
  Sender: FDA-Public Use
  Company Number: PHHY2010FR44633

PATIENT
  Age: 52 Year
  Sex: Female

DRUGS (2)
  1. VOLTAREN [Suspect]
     Indication: PAIN
     Dosage: UNK
     Route: 030
     Dates: start: 20100518, end: 20100520
  2. BI-PROFENID [Suspect]
     Indication: JOINT SPRAIN
     Dosage: 150 MG
     Route: 048
     Dates: start: 20100501

REACTIONS (6)
  - ACUTE FEBRILE NEUTROPHILIC DERMATOSIS [None]
  - ARTHRALGIA [None]
  - INFLAMMATION [None]
  - PYREXIA [None]
  - RASH [None]
  - RASH PAPULAR [None]
